FAERS Safety Report 4860895-4 (Version None)
Quarter: 2005Q4

REPORT INFORMATION
  Report Type: 
  Country: None (occurrence: None)
  Receive Date: 20051216
  Receipt Date: 20051130
  Transmission Date: 20060501
  Serious: Yes (Hospitalization)
  Sender: FDA-Public Use
  Company Number: 2005BI022002

PATIENT
  Age: 59 Year
  Sex: Female

DRUGS (2)
  1. ZEVALIN [Suspect]
     Indication: NON-HODGKIN'S LYMPHOMA STAGE I
     Dosage: UNKNOWN; 1X; IV
     Route: 042
     Dates: start: 20050805, end: 20050805
  2. RITUXIMAB [Concomitant]

REACTIONS (2)
  - HEPATIC FUNCTION ABNORMAL [None]
  - UNEVALUABLE EVENT [None]
